FAERS Safety Report 5960097-4 (Version None)
Quarter: 2008Q4

REPORT INFORMATION
  Report Type: 
  Country: None (occurrence: None)
  Receive Date: 20081118
  Receipt Date: 20081118
  Transmission Date: 20090506
  Serious: No
  Sender: FDA-Public Use
  Company Number: None

PATIENT
  Age: 51 Year
  Sex: Female
  Weight: 97.5234 kg

DRUGS (1)
  1. METOPROLOL SUCCINATE [Suspect]
     Indication: ATRIOVENTRICULAR BLOCK
     Dosage: 1 TABLET DAILY

REACTIONS (2)
  - DYSPHAGIA [None]
  - PRODUCT QUALITY ISSUE [None]
